FAERS Safety Report 4354434-4 (Version None)
Quarter: 2004Q2

REPORT INFORMATION
  Report Type: 
  Country: None (occurrence: None)
  Receive Date: 20040503
  Receipt Date: 20040419
  Transmission Date: 20050107
  Serious: Yes (Death, Hospitalization)
  Sender: FDA-Public Use
  Company Number: 2004026943

PATIENT
  Age: 88 Year
  Sex: Female

DRUGS (2)
  1. PIROXICAM [Suspect]
     Indication: ILL-DEFINED DISORDER
     Dosage: TOPICAL
     Route: 061
     Dates: start: 20031001
  2. FUROSEMIDE [Concomitant]

REACTIONS (2)
  - CHOLANGITIS [None]
  - SEPSIS [None]
